FAERS Safety Report 12091472 (Version 1)
Quarter: 2016Q1

REPORT INFORMATION
  Report Type: Report from Study
  Country: US (occurrence: US)
  Receive Date: 20160218
  Receipt Date: 20160218
  Transmission Date: 20160526
  Serious: Yes (Other)
  Sender: FDA-Public Use
  Company Number: US-REGENERON PHARMACEUTICALS, INC.-2015-11534

PATIENT

DRUGS (24)
  1. SYMBICORT [Concomitant]
     Active Substance: BUDESONIDE\FORMOTEROL FUMARATE DIHYDRATE
     Dosage: UNK
  2. VENTOLIN [Concomitant]
     Active Substance: ALBUTEROL SULFATE
     Dosage: UNK
  3. LINZESS [Concomitant]
     Active Substance: LINACLOTIDE
     Dosage: 200 ?G MICROGRAM(S), UNK
  4. SYNTHROID [Concomitant]
     Active Substance: LEVOTHYROXINE SODIUM
     Dosage: 1.5 ?G MICROGRAM(S), 3 DAYS A WEEK
  5. ASPIRIN                            /00002701/ [Concomitant]
     Active Substance: ASPIRIN
     Dosage: 81 MG MILLIGRAM(S), QD
  6. TOPAMAX [Concomitant]
     Active Substance: TOPIRAMATE
     Dosage: 100 MG MILLIGRAM(S), BID
  7. DITROPAN UD [Concomitant]
     Dosage: 5 MG MILLIGRAM(S), BID
  8. CENTRUM SILVER                     /02363801/ [Concomitant]
     Active Substance: MINERALS\VITAMINS
     Dosage: UNK
  9. ACYCLOVIR                          /00587301/ [Concomitant]
     Active Substance: ACYCLOVIR
     Indication: GENITAL HERPES
     Dosage: 800 MG MILLIGRAM(S), UNK
  10. DURAGESIC [Concomitant]
     Active Substance: FENTANYL
     Dosage: 25 ?G MICROGRAM(S), UNK
  11. SYNTHROID [Concomitant]
     Active Substance: LEVOTHYROXINE SODIUM
     Dosage: UNK
  12. VITAMIN B12 [Concomitant]
     Active Substance: CYANOCOBALAMIN
     Dosage: UNK
  13. FOLIC ACID. [Concomitant]
     Active Substance: FOLIC ACID
     Dosage: UNK
  14. SYNTHROID [Concomitant]
     Active Substance: LEVOTHYROXINE SODIUM
     Dosage: 0.75 ?G MICROGRAM(S), QD, 4 DAYS A WEEK
  15. NIZATIDINE. [Concomitant]
     Active Substance: NIZATIDINE
     Dosage: 300 MG MILLIGRAM(S), QD
  16. GABAPENTIN. [Concomitant]
     Active Substance: GABAPENTIN
     Dosage: 100 MG MILLIGRAM(S), BID
  17. VITAMIN D                          /00107901/ [Concomitant]
     Active Substance: ERGOCALCIFEROL
     Dosage: UNK
  18. DEXILANT [Concomitant]
     Active Substance: DEXLANSOPRAZOLE
     Dosage: 60 MG MILLIGRAM(S), QD
  19. CARAFATE [Concomitant]
     Active Substance: SUCRALFATE
     Dosage: UNK, QD
  20. ARCALYST [Suspect]
     Active Substance: RILONACEPT
     Indication: CHRONIC INFLAMMATORY DEMYELINATING POLYRADICULONEUROPATHY
     Dosage: 160 MG MILLIGRAM(S), WEEKLY
     Route: 058
     Dates: start: 201111
  21. ARCALYST [Suspect]
     Active Substance: RILONACEPT
     Dosage: 220 MG MILLIGRAM(S), WEEKLY
     Route: 058
  22. MAPROTILINE [Concomitant]
     Active Substance: MAPROTILINE
     Dosage: 200 MG MILLIGRAM(S), QD
  23. TOPAMAX [Concomitant]
     Active Substance: TOPIRAMATE
     Dosage: 25 MG MILLIGRAM(S), BID
  24. MIRALAX [Concomitant]
     Active Substance: POLYETHYLENE GLYCOL 3350
     Dosage: 2 DF DOSAGE FORM, QD

REACTIONS (7)
  - Infection [Unknown]
  - Nasopharyngitis [Unknown]
  - Bronchitis [Unknown]
  - Pneumonia [Unknown]
  - Dyspnoea [Unknown]
  - Wound [Unknown]
  - Asthenia [Unknown]
